FAERS Safety Report 5887973-5 (Version None)
Quarter: 2008Q3

REPORT INFORMATION
  Report Type: 
  Country: None (occurrence: None)
  Receive Date: 20080916
  Receipt Date: 20080904
  Transmission Date: 20090109
  Serious: Yes (Death, Hospitalization, Other)
  Sender: FDA-Public Use
  Company Number: 2007-02381

PATIENT
  Age: 67 Year
  Sex: Female
  Weight: 69.4 kg

DRUGS (17)
  1. VELCADE [Suspect]
     Indication: MULTIPLE MYELOMA
     Dosage: 1.3 MG/M2, INTRAVENOUS; 1 MG/M2, INTRAVENOUS
     Route: 042
     Dates: start: 20070305, end: 20070710
  2. VELCADE [Suspect]
     Indication: MULTIPLE MYELOMA
     Dosage: 1.3 MG/M2, INTRAVENOUS; 1 MG/M2, INTRAVENOUS
     Route: 042
     Dates: start: 20070710
  3. DEXAMETHASONE TAB [Suspect]
     Indication: MULTIPLE MYELOMA
     Dosage: 20 MG, ORAL
     Route: 048
     Dates: start: 20070305, end: 20070710
  4. DUONEB [Concomitant]
  5. MAGIC MOUTH WASH [Concomitant]
  6. FLUCONAZOLE [Concomitant]
  7. LIDOCAINE VISCOUS (LIDOCAINE HYDROCHLORIDE) [Concomitant]
  8. ALLEGRA [Concomitant]
  9. ATIVAN [Concomitant]
  10. CARAFATE [Concomitant]
  11. LASIX [Concomitant]
  12. LOTENSIN [Concomitant]
  13. LOVENOX [Concomitant]
  14. NORVASC [Concomitant]
  15. PROTONIX (PANTORPAZOLE) [Concomitant]
  16. COREG [Concomitant]
  17. FOSINOPRIL SODIUM [Concomitant]

REACTIONS (14)
  - AMYLOIDOSIS [None]
  - ANAEMIA [None]
  - BONE PAIN [None]
  - CARDIOMEGALY [None]
  - CARDIOMYOPATHY [None]
  - DISEASE PROGRESSION [None]
  - DYSPNOEA [None]
  - FATIGUE [None]
  - HYPERCALCAEMIA [None]
  - LETHARGY [None]
  - MALIGNANT NEOPLASM PROGRESSION [None]
  - MENTAL STATUS CHANGES [None]
  - MULTIPLE MYELOMA [None]
  - PLEURAL EFFUSION [None]
